FAERS Safety Report 25152700 (Version 2)
Quarter: 2025Q2

REPORT INFORMATION
  Report Type: Report from Study
  Country: CA (occurrence: CA)
  Receive Date: 20250403
  Receipt Date: 20250407
  Transmission Date: 20250716
  Serious: Yes (Hospitalization, Other)
  Sender: SANOFI AVENTIS
  Company Number: CA-SA-SAC20240515000484

PATIENT
  Age: 57 Year
  Sex: Female

DRUGS (3)
  1. DUPILUMAB [Suspect]
     Active Substance: DUPILUMAB
     Indication: Asthma
     Route: 058
     Dates: start: 20240430, end: 20240430
  2. DUPILUMAB [Suspect]
     Active Substance: DUPILUMAB
     Dosage: 300 MG, QOW
     Route: 058
     Dates: start: 202405, end: 20250205
  3. DUPILUMAB [Suspect]
     Active Substance: DUPILUMAB
     Dosage: 300 MG, QOW
     Route: 058
     Dates: start: 2024

REACTIONS (16)
  - Fall [Recovering/Resolving]
  - Pneumonia [Recovered/Resolved]
  - Delirium [Unknown]
  - Bacteraemia [Unknown]
  - Lung disorder [Recovered/Resolved]
  - Renal disorder [Recovered/Resolved]
  - Cough [Unknown]
  - Malaise [Unknown]
  - Aphonia [Unknown]
  - Fall [Unknown]
  - Mobility decreased [Unknown]
  - Oropharyngeal pain [Unknown]
  - Nasopharyngitis [Unknown]
  - Dizziness [Unknown]
  - Arthralgia [Unknown]
  - Inappropriate schedule of product administration [Unknown]

NARRATIVE: CASE EVENT DATE: 20240101
